FAERS Safety Report 6102651-5 (Version None)
Quarter: 2009Q1

REPORT INFORMATION
  Report Type: 
  Country: None (occurrence: None)
  Receive Date: 20090304
  Receipt Date: 20081113
  Transmission Date: 20090719
  Serious: No
  Sender: FDA-Public Use
  Company Number: A0756237A

PATIENT
  Age: 68 Year
  Sex: Male

DRUGS (11)
  1. REQUIP [Suspect]
     Indication: RESTLESS LEGS SYNDROME
     Dosage: 1MG AT NIGHT
     Route: 048
     Dates: start: 20081024
  2. TYLENOL W/ CODEINE NO. 3 [Concomitant]
  3. METHOCARBAMOL [Concomitant]
  4. SIMVASTATIN [Concomitant]
  5. QUETIAPINE FUMARATE [Concomitant]
  6. METFORMIN [Concomitant]
  7. OMEPRAZOLE [Concomitant]
  8. CELEBREX [Concomitant]
  9. ADVAIR HFA [Concomitant]
  10. VENTOLIN [Concomitant]
  11. ATROVENT [Concomitant]

REACTIONS (1)
  - ASTHENIA [None]
